FAERS Safety Report 5340501-5 (Version None)
Quarter: 2007Q2

REPORT INFORMATION
  Report Type: 
  Country: None (occurrence: None)
  Receive Date: 20070531
  Receipt Date: 20070528
  Transmission Date: 20071010
  Serious: Yes (Hospitalization)
  Sender: FDA-Public Use
  Company Number: FR-BRISTOL-MYERS SQUIBB COMPANY-13795893

PATIENT
  Age: 71 Year
  Sex: Male

DRUGS (4)
  1. APROVEL TABS 150 MG [Suspect]
     Route: 048
     Dates: end: 20061106
  2. EUPRESSYL [Concomitant]
     Route: 048
  3. LERCAN [Concomitant]
     Route: 048
  4. AVLOCARDYL [Concomitant]
     Route: 048

REACTIONS (2)
  - BLOOD PRESSURE INCREASED [None]
  - RENAL FAILURE [None]
